FAERS Safety Report 5048770-6 (Version None)
Quarter: 2006Q3

REPORT INFORMATION
  Report Type: 
  Country: None (occurrence: None)
  Receive Date: 20060705
  Receipt Date: 20060626
  Transmission Date: 20061208
  Serious: Yes (Other)
  Sender: FDA-Public Use
  Company Number: 2006080907

PATIENT
  Sex: 0

DRUGS (3)
  1. ALDACTONE [Suspect]
     Dosage: 25 MG (INTERVAL: EVERY OTHER DAY), ORAL
     Route: 048
     Dates: start: 20060529
  2. LASIX [Concomitant]
  3. WARFARIN SODIUM [Concomitant]

REACTIONS (3)
  - DEAFNESS [None]
  - STRESS [None]
  - SWELLING [None]
